FAERS Safety Report 4984593-1 (Version None)
Quarter: 2006Q2

REPORT INFORMATION
  Report Type: 
  Country: None (occurrence: None)
  Receive Date: 20060419
  Receipt Date: 20060412
  Transmission Date: 20061013
  Serious: Yes (Hospitalization)
  Sender: FDA-Public Use
  Company Number: S06-FRA-01263-01

PATIENT
  Age: 75 Year
  Sex: Male

DRUGS (6)
  1. MEMANTINE HCL [Suspect]
     Dates: end: 20060206
  2. FLUCONAZOLE [Suspect]
     Dates: start: 20060113, end: 20060121
  3. RABEPRAZOLE SODIUM [Suspect]
     Dosage: 20 MG PO
     Route: 048
     Dates: end: 20060127
  4. GALANTAMINE HYDROBROMIDE [Suspect]
     Dates: end: 20060206
  5. DIAMICRON (GLICLAZIDE) [Suspect]
     Dates: end: 20060127
  6. SMECTA /OLD FORM/ [Concomitant]

REACTIONS (9)
  - ARTHRITIS [None]
  - BEDRIDDEN [None]
  - CANDIDIASIS [None]
  - CYTOLYTIC HEPATITIS [None]
  - DEHYDRATION [None]
  - DIARRHOEA [None]
  - HEPATIC STEATOSIS [None]
  - HEPATOTOXICITY [None]
  - PERFORMANCE STATUS DECREASED [None]
